FAERS Safety Report 5852677-1 (Version None)
Quarter: 2008Q3

REPORT INFORMATION
  Report Type: 
  Country: None (occurrence: None)
  Receive Date: 20080821
  Receipt Date: 20080811
  Transmission Date: 20090109
  Serious: Yes (Other)
  Sender: FDA-Public Use
  Company Number: CA-ALLERGAN-0810332US

PATIENT

DRUGS (1)
  1. BOTULINUM TOXIN TYPE A [Suspect]
     Indication: SKIN WRINKLING
     Dosage: 20 UNITS, SINGLE
     Route: 030

REACTIONS (2)
  - CHEST PAIN [None]
  - DYSPNOEA [None]
